FAERS Safety Report 10173394 (Version 1)
Quarter: 2014Q2

REPORT INFORMATION
  Report Type: Spontaneous
  Country: US (occurrence: US)
  Receive Date: 20140515
  Receipt Date: 20140515
  Transmission Date: 20141212
  Serious: No
  Sender: FDA-Public Use
  Company Number: US-TEVA-477943USA

PATIENT
  Sex: Female
  Weight: 72.64 kg

DRUGS (10)
  1. AZILECT [Suspect]
     Indication: PARKINSON^S DISEASE
     Dosage: .5 MILLIGRAM DAILY;
     Route: 048
     Dates: start: 201401, end: 201403
  2. AZILECT [Suspect]
     Dosage: 1 MILLIGRAM DAILY;
     Route: 048
     Dates: start: 201403
  3. CELEBREX [Concomitant]
     Indication: ARTHRITIS
     Dosage: 200 MILLIGRAM DAILY;
     Route: 048
  4. ATORVASTATIN [Concomitant]
     Indication: BLOOD CHOLESTEROL INCREASED
     Dosage: 10 MILLIGRAM DAILY;
  5. PROPANOLOL ER [Concomitant]
     Indication: PROPHYLAXIS
     Dosage: 120 MILLIGRAM DAILY;
     Route: 048
  6. AMLODIPINE [Concomitant]
     Indication: HYPERTENSION
     Dosage: 5/20MG
     Route: 048
  7. MULTIVITAMIN [Concomitant]
     Indication: SUPPLEMENTATION THERAPY
  8. CALCIUM [Concomitant]
     Indication: SUPPLEMENTATION THERAPY
     Route: 048
  9. VITAMIN D-3 [Concomitant]
     Indication: SUPPLEMENTATION THERAPY
     Route: 048
  10. VITAMIN B12 [Concomitant]
     Indication: SUPPLEMENTATION THERAPY
     Route: 030

REACTIONS (2)
  - Tremor [Not Recovered/Not Resolved]
  - Skin discomfort [Not Recovered/Not Resolved]
